FAERS Safety Report 11402303 (Version 1)
Quarter: 2015Q3

REPORT INFORMATION
  Report Type: Spontaneous
  Country: US (occurrence: None)
  Receive Date: 20150820
  Receipt Date: 20150820
  Transmission Date: 20151125
  Serious: No
  Sender: FDA-Public Use
  Company Number: None

PATIENT
  Age: 41 Year
  Sex: Female

DRUGS (1)
  1. HUMIRA [Suspect]
     Active Substance: ADALIMUMAB
     Indication: PSORIATIC ARTHROPATHY
     Dosage: 40.00 ?Q2W?SQ
     Route: 058
     Dates: start: 20150605, end: 20150818

REACTIONS (3)
  - Sinusitis [None]
  - Nausea [None]
  - Headache [None]

NARRATIVE: CASE EVENT DATE: 20150731
